FAERS Safety Report 12206433 (Version 1)
Quarter: 2016Q1

REPORT INFORMATION
  Report Type: Spontaneous
  Country: US (occurrence: US)
  Receive Date: 20160324
  Receipt Date: 20160324
  Transmission Date: 20160526
  Serious: No
  Sender: FDA-Public Use
  Company Number: US-PFIZER INC-2016121227

PATIENT
  Age: 79 Year
  Sex: Female
  Weight: 72 kg

DRUGS (9)
  1. WARFARIN [Concomitant]
     Active Substance: WARFARIN
     Indication: THROMBOSIS PROPHYLAXIS
     Dosage: 4.5MG SIX DAYS A WEEK
  2. TYLENOL [Concomitant]
     Active Substance: ACETAMINOPHEN
     Indication: LUMBAR SPINAL STENOSIS
     Dosage: 500 MG, AS NEEDED
  3. NORVASC [Concomitant]
     Active Substance: AMLODIPINE BESYLATE
     Indication: BLOOD PRESSURE ABNORMAL
     Dosage: 2.5 MG, 2X/DAY
  4. VALSARTAN. [Concomitant]
     Active Substance: VALSARTAN
     Indication: BLOOD PRESSURE ABNORMAL
     Dosage: 80 MG, 2X/DAY
  5. WARFARIN [Concomitant]
     Active Substance: WARFARIN
     Dosage: 3MG ONCE WEEKLY
  6. TIKOSYN [Suspect]
     Active Substance: DOFETILIDE
     Indication: ATRIAL FIBRILLATION
     Dosage: 250 MG, 2X/DAY
     Dates: start: 20160201
  7. METRONIDAZOLE. [Concomitant]
     Active Substance: METRONIDAZOLE
     Indication: THYROID DISORDER
     Dosage: 5 MG, DAILY
     Dates: start: 20151223
  8. LOPRESSOR [Concomitant]
     Active Substance: METOPROLOL TARTRATE
     Indication: CARDIAC DISORDER
     Dosage: 12.5 MG, 2X/DAY
     Dates: start: 20160201
  9. PRESERVISION [Concomitant]
     Active Substance: MINERALS\VITAMINS
     Indication: EYE DISORDER
     Dosage: UNK, 1X/DAY

REACTIONS (2)
  - Hyperchlorhydria [Not Recovered/Not Resolved]
  - Heart rate increased [Unknown]

NARRATIVE: CASE EVENT DATE: 20160217
